FAERS Safety Report 24150669 (Version 1)
Quarter: 2024Q3

REPORT INFORMATION
  Report Type: Spontaneous
  Country: US (occurrence: None)
  Receive Date: 20240728
  Receipt Date: 20240728
  Transmission Date: 20241017
  Serious: Yes (Other)
  Sender: Public
  Company Number: None

PATIENT
  Age: 58 Year
  Sex: Female
  Weight: 79.38 kg

DRUGS (1)
  1. DUPIXENT [Suspect]
     Active Substance: DUPILUMAB
     Indication: Dermatitis atopic
     Dosage: 300 MG EVERY OTHER WEEK SUBCUTANEOUS ?
     Route: 058
     Dates: start: 20240718

REACTIONS (3)
  - Injection site pruritus [None]
  - Injection site bruising [None]
  - Injection site reaction [None]

NARRATIVE: CASE EVENT DATE: 20240718
